FAERS Safety Report 8405202-5 (Version None)
Quarter: 2012Q2

REPORT INFORMATION
  Report Type: 
  Country: None (occurrence: None)
  Receive Date: 20120603
  Receipt Date: 20120601
  Transmission Date: 20120825
  Serious: Yes (Death)
  Sender: FDA-Public Use
  Company Number: JP-BAYER-2012-053548

PATIENT
  Age: 76 Year
  Sex: Male

DRUGS (2)
  1. NSAID'S [Suspect]
     Indication: ARTHRALGIA
     Route: 048
  2. ASPIRIN [Suspect]
     Indication: CEREBRAL INFARCTION
     Dosage: UNK
     Route: 048

REACTIONS (1)
  - DUODENAL ULCER PERFORATION [None]
